FAERS Safety Report 17493422 (Version 1)
Quarter: 2020Q1

REPORT INFORMATION
  Report Type: Spontaneous
  Country: None (occurrence: US)
  Receive Date: 20200303
  Receipt Date: 20200303
  Transmission Date: 20200409
  Serious: No
  Sender: FDA-Public Use
  Company Number: US-AMNEAL PHARMACEUTICALS-2019-IPXL-00799

PATIENT
  Age: 80 Year
  Sex: Female

DRUGS (1)
  1. RYTARY [Suspect]
     Active Substance: CARBIDOPA\LEVODOPA
     Indication: PARKINSON^S DISEASE
     Dosage: 4 DOSAGE FORM, 4 /DAY
     Route: 048
     Dates: end: 20190331

REACTIONS (5)
  - Product dose omission [Unknown]
  - Musculoskeletal discomfort [Recovering/Resolving]
  - Dry mouth [Recovering/Resolving]
  - Tremor [Recovering/Resolving]
  - Prescribed overdose [Unknown]

NARRATIVE: CASE EVENT DATE: 20190331
